FAERS Safety Report 7480496-1 (Version None)
Quarter: 2011Q2

REPORT INFORMATION
  Report Type: 
  Country: None (occurrence: None)
  Receive Date: 20110516
  Receipt Date: 20110502
  Transmission Date: 20111010
  Serious: Yes (Other)
  Sender: FDA-Public Use
  Company Number: CA-JNJFOC-20110502022

PATIENT
  Sex: Female
  Weight: 60.5 kg

DRUGS (2)
  1. DESOGESTREL AND ETHINYL ESTRADIOL [Concomitant]
  2. REMICADE [Suspect]
     Indication: CROHN'S DISEASE
     Route: 042
     Dates: start: 20071206

REACTIONS (1)
  - FEMALE GENITAL TRACT FISTULA [None]
